FAERS Safety Report 15508885 (Version 1)
Quarter: 2018Q4

REPORT INFORMATION
  Report Type: Spontaneous
  Country: US (occurrence: US)
  Receive Date: 20181016
  Receipt Date: 20181016
  Transmission Date: 20190205
  Serious: No
  Sender: FDA-Public Use
  Company Number: None

PATIENT
  Age: 61 Year
  Sex: Female
  Weight: 72 kg

DRUGS (2)
  1. KIRKLAND SIGNATURE ALLER FLO [Suspect]
     Active Substance: FLUTICASONE PROPIONATE
     Indication: HYPERSENSITIVITY
     Dosage: ?          QUANTITY:1 SPRAY(S);?
     Route: 055
  2. KIRKLAND SIGNATURE ALLER FLO [Suspect]
     Active Substance: FLUTICASONE PROPIONATE
     Indication: SINUS HEADACHE
     Dosage: ?          QUANTITY:1 SPRAY(S);?
     Route: 055

REACTIONS (1)
  - Vision blurred [None]

NARRATIVE: CASE EVENT DATE: 20180912
